FAERS Safety Report 25211605 (Version 2)
Quarter: 2025Q3

REPORT INFORMATION
  Report Type: Spontaneous
  Country: US (occurrence: US)
  Receive Date: 20250418
  Receipt Date: 20250722
  Transmission Date: 20251021
  Serious: No
  Sender: ALEXION PHARMACEUTICALS
  Company Number: US-AstraZeneca-CH-00848682AP

PATIENT
  Age: 58 Year
  Sex: Female

DRUGS (1)
  1. SYMBICORT [Suspect]
     Active Substance: BUDESONIDE\FORMOTEROL FUMARATE DIHYDRATE
     Indication: Chronic obstructive pulmonary disease

REACTIONS (10)
  - Device use issue [Unknown]
  - Incorrect dose administered by device [Unknown]
  - Cough [Unknown]
  - Respiratory disorder [Unknown]
  - Productive cough [Unknown]
  - Intentional product misuse [Unknown]
  - Off label use [Unknown]
  - Device malfunction [Unknown]
  - Breath sounds abnormal [Unknown]
  - Dyspnoea [Unknown]

NARRATIVE: CASE EVENT DATE: 20250323
